FAERS Safety Report 20048022 (Version 3)
Quarter: 2021Q4

REPORT INFORMATION
  Report Type: Report from Study
  Country: US (occurrence: US)
  Receive Date: 20211109
  Receipt Date: 20211126
  Transmission Date: 20220303
  Serious: Yes (Hospitalization, Disabling, Other)
  Sender: FDA-Public Use
  Company Number: US-SANOFI-00841394

PATIENT
  Age: 42 Year
  Sex: Female

DRUGS (10)
  1. TERIFLUNOMIDE [Suspect]
     Active Substance: TERIFLUNOMIDE
     Indication: Multiple sclerosis
     Dosage: 14 MG, QD
     Route: 048
     Dates: start: 20181115
  2. IRON [Concomitant]
     Active Substance: IRON
     Indication: Mineral supplementation
     Dosage: UNK
  3. IRON [Concomitant]
     Active Substance: IRON
  4. XARELTO [Concomitant]
     Active Substance: RIVAROXABAN
  5. XARELTO [Concomitant]
     Active Substance: RIVAROXABAN
  6. BACLOFEN [Concomitant]
     Active Substance: BACLOFEN
  7. UBRELVY [Concomitant]
     Active Substance: UBROGEPANT
  8. PERCOCET [Concomitant]
     Active Substance: ACETAMINOPHEN\OXYCODONE HYDROCHLORIDE
  9. LYRICA [Concomitant]
     Active Substance: PREGABALIN
  10. ROPINIROLE [Concomitant]
     Active Substance: ROPINIROLE

REACTIONS (11)
  - Transfusion [Unknown]
  - Haemorrhage [Not Recovered/Not Resolved]
  - Thrombosis [Unknown]
  - Disability [Unknown]
  - Haemoglobin decreased [Not Recovered/Not Resolved]
  - Uterine leiomyoma [Unknown]
  - Intrauterine contraception [Unknown]
  - Vascular graft [Not Recovered/Not Resolved]
  - Post-traumatic stress disorder [Unknown]
  - Depression [Unknown]
  - Anxiety [Unknown]

NARRATIVE: CASE EVENT DATE: 20210301
